FAERS Safety Report 9218848 (Version 1)
Quarter: 2013Q2

REPORT INFORMATION
  Report Type: Spontaneous
  Country: US (occurrence: US)
  Receive Date: 20130409
  Receipt Date: 20130409
  Transmission Date: 20140414
  Serious: Yes (Other)
  Sender: FDA-Public Use
  Company Number: US-SANOFI-AVENTIS-2013SA036052

PATIENT
  Sex: Female

DRUGS (2)
  1. LANTUS [Suspect]
     Route: 051
  2. HUMALOG [Suspect]

REACTIONS (4)
  - Fibromyalgia [Unknown]
  - Cervix carcinoma [Unknown]
  - Systemic lupus erythematosus [Unknown]
  - Blindness [Unknown]
